FAERS Safety Report 8067170-8 (Version None)
Quarter: 2012Q1

REPORT INFORMATION
  Report Type: 
  Country: None (occurrence: None)
  Receive Date: 20120124
  Receipt Date: 20120120
  Transmission Date: 20120608
  Serious: Yes (Hospitalization)
  Sender: FDA-Public Use
  Company Number: US-GLAXOSMITHKLINE-A0899050A

PATIENT
  Age: 41 Year
  Sex: Male
  Weight: 129.1 kg

DRUGS (8)
  1. INSULIN [Concomitant]
  2. HYDROCHLOROTHIAZIDE [Concomitant]
  3. AVANDAMET [Suspect]
     Indication: DIABETES MELLITUS
     Dosage: 1TAB TWICE PER DAY
     Route: 048
     Dates: start: 20050103, end: 20050101
  4. METFORMIN HYDROCHLORIDE [Concomitant]
     Dates: end: 20070101
  5. INSULIN [Concomitant]
  6. GLUCOPHAGE [Concomitant]
  7. AVANDIA [Suspect]
     Indication: DIABETES MELLITUS
     Dosage: 2MG TWICE PER DAY
     Route: 048
     Dates: end: 20070101
  8. VYTORIN [Concomitant]

REACTIONS (3)
  - CARDIAC FAILURE CONGESTIVE [None]
  - STENT PLACEMENT [None]
  - MYOCARDIAL INFARCTION [None]
